FAERS Safety Report 4664066-6 (Version None)
Quarter: 2005Q2

REPORT INFORMATION
  Report Type: 
  Country: None (occurrence: None)
  Receive Date: 20050504
  Receipt Date: 20050421
  Transmission Date: 20051028
  Serious: Yes (Hospitalization)
  Sender: FDA-Public Use
  Company Number: 2005-00804

PATIENT
  Age: 70 Year
  Sex: Male

DRUGS (1)
  1. IMMUCYST [Suspect]
     Indication: BLADDER CANCER
     Dosage: (81.0 MG) I.VES., BLADDER
     Route: 043
     Dates: start: 20040716

REACTIONS (2)
  - HAEMATURIA [None]
  - PROSTATITIS [None]
